FAERS Safety Report 10015765 (Version 2)
Quarter: 2014Q2

REPORT INFORMATION
  Report Type: Spontaneous
  Country: US (occurrence: US)
  Receive Date: 20140317
  Receipt Date: 20140422
  Transmission Date: 20141212
  Serious: Yes (Hospitalization, Other)
  Sender: FDA-Public Use
  Company Number: US-CELGENEUS-163-20785-14030669

PATIENT
  Age: 75 Year
  Sex: Female

DRUGS (7)
  1. THALOMID [Suspect]
     Indication: LICHENIFICATION
     Dosage: 200 MILLIGRAM
     Route: 048
     Dates: start: 201308
  2. TYLENOL [Concomitant]
     Indication: PAIN MANAGEMENT
     Route: 048
  3. FLUOXETINE [Concomitant]
     Indication: PRODUCT USED FOR UNKNOWN INDICATION
     Route: 065
  4. LIPITOR [Concomitant]
     Indication: PRODUCT USED FOR UNKNOWN INDICATION
     Route: 065
  5. INSULIN [Concomitant]
     Indication: PRODUCT USED FOR UNKNOWN INDICATION
     Route: 065
  6. LANTUS [Concomitant]
     Indication: PRODUCT USED FOR UNKNOWN INDICATION
     Route: 065
  7. VALIUM [Concomitant]
     Indication: PRODUCT USED FOR UNKNOWN INDICATION
     Route: 065

REACTIONS (6)
  - Road traffic accident [Recovered/Resolved]
  - Haemothorax [Unknown]
  - Rib fracture [Unknown]
  - Lung infection [Recovered/Resolved]
  - Sepsis [Unknown]
  - Urinary tract infection [Unknown]
